FAERS Safety Report 5846064-X (Version None)
Quarter: 2008Q3

REPORT INFORMATION
  Report Type: 
  Country: None (occurrence: None)
  Receive Date: 20080814
  Receipt Date: 20080804
  Transmission Date: 20090109
  Serious: Yes (Hospitalization)
  Sender: FDA-Public Use
  Company Number: CH-BRISTOL-MYERS SQUIBB COMPANY-14298426

PATIENT
  Age: 58 Year
  Sex: Male

DRUGS (9)
  1. CETUXIMAB [Suspect]
     Indication: OESOPHAGEAL CARCINOMA
     Dosage: RECENT INFUSION ON 14JUL08.
     Route: 042
     Dates: start: 20080506
  2. CISPLATIN [Suspect]
     Indication: OESOPHAGEAL CARCINOMA
     Dosage: RECENT INFUSION ON 14JUL08.
     Route: 042
     Dates: start: 20080506
  3. TAXOTERE [Suspect]
     Indication: OESOPHAGEAL CARCINOMA
     Dosage: RECENT INFUSION ON 14JUL08.
     Route: 042
     Dates: start: 20080506
  4. RADIOTHERAPY [Suspect]
     Indication: OESOPHAGEAL CARCINOMA
     Dosage: 1DF=1.8GY,RECENT INFUSION ON 18JUL08.
     Dates: start: 20080616
  5. MORPHINE [Concomitant]
     Route: 048
     Dates: start: 20080707
  6. OLFEN [Concomitant]
     Route: 048
     Dates: start: 20080707
  7. PANTOZOL [Concomitant]
     Route: 048
     Dates: start: 20080506
  8. BISOPROLOL FUMARATE [Concomitant]
     Route: 048
     Dates: start: 20080506
  9. ENATEC [Concomitant]
     Dates: start: 20080506

REACTIONS (6)
  - ANOREXIA [None]
  - DYSPHAGIA [None]
  - GENERAL PHYSICAL HEALTH DETERIORATION [None]
  - NAUSEA [None]
  - PAIN [None]
  - STOMATITIS [None]
